FAERS Safety Report 9604325 (Version 1)
Quarter: 2013Q4

REPORT INFORMATION
  Report Type: Report from Study
  Country: BR (occurrence: BR)
  Receive Date: 20131008
  Receipt Date: 20131008
  Transmission Date: 20140711
  Serious: Yes (Other)
  Sender: FDA-Public Use
  Company Number: PHHY2013BR111058

PATIENT
  Age: 62 Year
  Sex: Male

DRUGS (4)
  1. BUDESONIDE, FORMOTEROL FUMARATE [Suspect]
     Indication: CHRONIC OBSTRUCTIVE PULMONARY DISEASE
     Dosage: 1 DF, BID
     Dates: start: 200506
  2. BUDESONIDE, FORMOTEROL FUMARATE [Suspect]
     Dosage: 1 DF, BID
  3. BUDESONIDE, FORMOTEROL FUMARATE [Suspect]
     Dosage: 1 DF, BID
  4. CAPTOPRIL [Concomitant]
     Dosage: UNK UKN, UNK
     Dates: start: 20010124

REACTIONS (8)
  - Lower respiratory tract infection [Unknown]
  - Emphysema [Unknown]
  - Diabetes mellitus [Unknown]
  - Hepatic steatosis [Unknown]
  - Upper respiratory tract infection [Unknown]
  - Dyspnoea [Recovering/Resolving]
  - Weight increased [Unknown]
  - Blood pressure increased [Unknown]
